FAERS Safety Report 13949287 (Version 1)
Quarter: 2017Q3

REPORT INFORMATION
  Report Type: Spontaneous
  Country: US (occurrence: US)
  Receive Date: 20170908
  Receipt Date: 20170908
  Transmission Date: 20171128
  Serious: Yes (Disabling)
  Sender: FDA-Public Use
  Company Number: US-GLAXOSMITHKLINE-US2017138394

PATIENT
  Sex: Female

DRUGS (22)
  1. BENADRYL [Concomitant]
     Active Substance: DIPHENHYDRAMINE HYDROCHLORIDE
  2. LEVOTHYROXINE. [Concomitant]
     Active Substance: LEVOTHYROXINE
  3. SYMBICORT [Concomitant]
     Active Substance: BUDESONIDE\FORMOTEROL FUMARATE DIHYDRATE
  4. VITAMIN C [Concomitant]
     Active Substance: ASCORBIC ACID
  5. SINUS BUSTER [Concomitant]
  6. XOPENEX [Concomitant]
     Active Substance: LEVALBUTEROL HYDROCHLORIDE
  7. EXCEDRIN EXTRA STRENGTH [Concomitant]
     Active Substance: ACETAMINOPHEN\ASPIRIN\CAFFEINE
  8. MECLIZINE [Concomitant]
     Active Substance: MECLIZINE HYDROCHLORIDE
  9. MUCINEX [Concomitant]
     Active Substance: GUAIFENESIN
  10. AMLODIPINE [Concomitant]
     Active Substance: AMLODIPINE BESYLATE
  11. NUCALA [Suspect]
     Active Substance: MEPOLIZUMAB
     Indication: ASTHMA
     Dosage: 100 MG, CYC
     Route: 042
     Dates: start: 20170523, end: 201706
  12. CALCIUM [Concomitant]
     Active Substance: CALCIUM
  13. CYTOMEL [Concomitant]
     Active Substance: LIOTHYRONINE SODIUM
  14. DEVROM [Concomitant]
     Active Substance: BISMUTH SUBGALLATE
  15. LISINOPRIL. [Concomitant]
     Active Substance: LISINOPRIL
  16. SINGULAIR [Concomitant]
     Active Substance: MONTELUKAST SODIUM
  17. XIIDRA [Concomitant]
     Active Substance: LIFITEGRAST
  18. FLONASE [Concomitant]
     Active Substance: FLUTICASONE PROPIONATE
  19. MOTRIN [Concomitant]
     Active Substance: IBUPROFEN
  20. OMEPRAZOLE. [Concomitant]
     Active Substance: OMEPRAZOLE
  21. CHLORPHENIRAMINE. [Concomitant]
     Active Substance: CHLORPHENIRAMINE
  22. LOMOTIL (ATROPINE + DIPHENOXYLATE) [Concomitant]

REACTIONS (11)
  - Paraesthesia [Recovering/Resolving]
  - Hypertension [Recovering/Resolving]
  - Weight decreased [Recovering/Resolving]
  - Spinal pain [Unknown]
  - Pruritus [Recovered/Resolved]
  - Abdominal pain [Recovered/Resolved]
  - Vertigo [Recovering/Resolving]
  - Vision blurred [Recovering/Resolving]
  - Muscle spasms [Recovered/Resolved]
  - Pain in extremity [Recovered/Resolved]
  - Feeding disorder [Recovering/Resolving]

NARRATIVE: CASE EVENT DATE: 2017
